FAERS Safety Report 7203938-5 (Version None)
Quarter: 2010Q4

REPORT INFORMATION
  Report Type: 
  Country: None (occurrence: None)
  Receive Date: 20101230
  Receipt Date: 20101228
  Transmission Date: 20110411
  Serious: No
  Sender: FDA-Public Use
  Company Number: US-PFIZER INC-2010177313

PATIENT
  Sex: Male
  Weight: 107 kg

DRUGS (4)
  1. CHANTIX [Suspect]
     Indication: SMOKING CESSATION THERAPY
     Dosage: 0.5 MG, DAILY
     Route: 048
     Dates: start: 20101001, end: 20101225
  2. NIFEDIPINE [Concomitant]
     Indication: HYPERTENSION
     Dosage: 60 MG, DAILY
     Route: 048
  3. ATENOLOL [Concomitant]
     Indication: HYPERTENSION
     Dosage: 100 MG, DAILY
     Route: 048
  4. TRIAMTERENE AND HYDROCHLOROTHIAZIDE [Concomitant]
     Indication: HYPERTENSION
     Dosage: [HYDROCHLOROTHIAZIDE 50 MG]/[TRIAMTERENE 75 MG]
     Route: 048

REACTIONS (2)
  - AGITATION [None]
  - EMOTIONAL DISORDER [None]
